FAERS Safety Report 9265231 (Version 1)
Quarter: 2013Q2

REPORT INFORMATION
  Report Type: Spontaneous
  Country: EG (occurrence: EG)
  Receive Date: 20130501
  Receipt Date: 20130501
  Transmission Date: 20140414
  Serious: Yes (Other)
  Sender: FDA-Public Use
  Company Number: EG-SANOFI-AVENTIS-2013SA042438

PATIENT
  Sex: Female

DRUGS (1)
  1. ARAVA [Suspect]
     Indication: RHEUMATOID ARTHRITIS
     Dosage: SHE STARTED TAKING ARAVA 20, THEN ARAVA 10
     Route: 048
     Dates: start: 2003, end: 201211

REACTIONS (2)
  - Abortion [Unknown]
  - Exposure during pregnancy [Unknown]
